FAERS Safety Report 6655698-4 (Version None)
Quarter: 2010Q1

REPORT INFORMATION
  Report Type: 
  Country: None (occurrence: None)
  Receive Date: 20100326
  Receipt Date: 20100326
  Transmission Date: 20100710
  Serious: Yes (Disabling, Other)
  Sender: FDA-Public Use
  Company Number: None

PATIENT
  Age: 49 Year
  Sex: Female
  Weight: 91.6266 kg

DRUGS (2)
  1. SIMVASTATIN [Suspect]
     Indication: BLOOD CHOLESTEROL INCREASED
     Dosage: 1 TABLET BEDTIME
     Dates: start: 20100210, end: 20100302
  2. ZOCOR [Suspect]
     Indication: THERAPY CESSATION

REACTIONS (4)
  - DYSPNOEA [None]
  - NAUSEA [None]
  - SWELLING [None]
  - URINE ABNORMALITY [None]
